FAERS Safety Report 9520668 (Version 1)
Quarter: 2013Q3

REPORT INFORMATION
  Report Type: Spontaneous
  Country: CA (occurrence: CA)
  Receive Date: 20130913
  Receipt Date: 20130913
  Transmission Date: 20140515
  Serious: Yes (Disabling)
  Sender: FDA-Public Use
  Company Number: CA-ASTRAZENECA-2013SE68034

PATIENT
  Age: 71 Year
  Sex: Female
  Weight: 102.1 kg

DRUGS (9)
  1. ARIMIDEX [Suspect]
     Route: 048
  2. ASAPHEN [Concomitant]
  3. CELEBREX [Concomitant]
  4. CRESTOR [Concomitant]
     Route: 048
  5. DIAMICRON [Concomitant]
  6. ONGLYZA [Concomitant]
     Route: 048
  7. METFORMIN [Concomitant]
  8. TAMOXIFEN [Concomitant]
  9. VESICARE [Concomitant]

REACTIONS (6)
  - Insomnia [Not Recovered/Not Resolved]
  - Lymphatic disorder [Not Recovered/Not Resolved]
  - Musculoskeletal stiffness [Not Recovered/Not Resolved]
  - Pain in extremity [Not Recovered/Not Resolved]
  - Vertigo [Not Recovered/Not Resolved]
  - Decreased appetite [Not Recovered/Not Resolved]
